FAERS Safety Report 5812736-6 (Version None)
Quarter: 2008Q3

REPORT INFORMATION
  Report Type: 
  Country: None (occurrence: None)
  Receive Date: 20080714
  Receipt Date: 20080714
  Transmission Date: 20090109
  Serious: No
  Sender: FDA-Public Use
  Company Number: None

PATIENT
  Age: 51 Year
  Sex: Female
  Weight: 101.1521 kg

DRUGS (2)
  1. EQUATE PAIN RELIEVER  500 MG  PERRIGO, ALLERGAN, MI 49010 USA [Suspect]
     Indication: FALL
     Dosage: 2 TABLES TWICE A DAY PO
     Route: 048
     Dates: start: 20080710, end: 20080711
  2. EQUATE PAIN RELIEVER  500 MG  PERRIGO, ALLERGAN, MI 49010 USA [Suspect]
     Indication: MYALGIA
     Dosage: 2 TABLES TWICE A DAY PO
     Route: 048
     Dates: start: 20080710, end: 20080711

REACTIONS (3)
  - DRUG INEFFECTIVE [None]
  - PHARMACEUTICAL PRODUCT COMPLAINT [None]
  - THERAPEUTIC RESPONSE UNEXPECTED WITH DRUG SUBSTITUTION [None]
